FAERS Safety Report 23917185 (Version 1)
Quarter: 2024Q2

REPORT INFORMATION
  Report Type: Spontaneous
  Country: US (occurrence: US)
  Receive Date: 20240529
  Receipt Date: 20240529
  Transmission Date: 20240715
  Serious: Yes (Other)
  Sender: FDA-Public Use
  Company Number: US-Crown Laboratories, Inc.-2157543

PATIENT
  Age: 86 Year
  Sex: Female

DRUGS (1)
  1. ZEASORB AF [Suspect]
     Active Substance: MICONAZOLE NITRATE
     Dates: start: 20240502, end: 20240502

REACTIONS (2)
  - Cough [Not Recovered/Not Resolved]
  - Accidental exposure to product by elderly person [Not Recovered/Not Resolved]

NARRATIVE: CASE EVENT DATE: 20240502
